FAERS Safety Report 6143898-1 (Version None)
Quarter: 2009Q2

REPORT INFORMATION
  Report Type: 
  Country: None (occurrence: None)
  Receive Date: 20090406
  Receipt Date: 20090402
  Transmission Date: 20091009
  Serious: Yes (Death)
  Sender: FDA-Public Use
  Company Number: PHEH2009US01988

PATIENT
  Sex: Male
  Weight: 70.295 kg

DRUGS (1)
  1. ZOMETA [Suspect]
     Indication: BONE NEOPLASM MALIGNANT
     Dosage: 4MG/5ML, UNK

REACTIONS (1)
  - PROSTATE CANCER METASTATIC [None]
